FAERS Safety Report 13004950 (Version 2)
Quarter: 2017Q1

REPORT INFORMATION
  Report Type: Spontaneous
  Country: JP (occurrence: JP)
  Receive Date: 20161207
  Receipt Date: 20170125
  Transmission Date: 20170428
  Serious: Yes (Hospitalization, Other)
  Sender: FDA-Public Use
  Company Number: JP-SERB S.A.S.-1060506

PATIENT
  Age: 66 Year
  Sex: Female
  Weight: 55 kg

DRUGS (13)
  1. CYANOKIT [Suspect]
     Active Substance: HYDROXOCOBALAMIN
     Indication: PRODUCT USED FOR UNKNOWN INDICATION
     Route: 041
  2. PYRIDOXAL [Concomitant]
     Active Substance: PYRIDOXAL
  3. SENNOSIDES. [Concomitant]
     Active Substance: SENNOSIDES
  4. HEPARIN [Concomitant]
     Active Substance: HEPARIN SODIUM
  5. DILTIAZEM HYDROCHLORIDE. [Concomitant]
     Active Substance: DILTIAZEM HYDROCHLORIDE
  6. UBIDECARENONE [Concomitant]
     Active Substance: UBIDECARENONE
  7. FURSULTIAMINE [Concomitant]
     Active Substance: FURSULTIAMINE
  8. EDARAVONE [Concomitant]
     Active Substance: EDARAVONE
  9. DABIGATRAN [Concomitant]
     Active Substance: DABIGATRAN
  10. LOXOPROFEN [Concomitant]
     Active Substance: LOXOPROFEN
  11. RABEPRAZOLE SODIUM. [Concomitant]
     Active Substance: RABEPRAZOLE SODIUM
  12. CEFAZOLIN SODIUM. [Concomitant]
     Active Substance: CEFAZOLIN SODIUM
  13. METOCLOPRAMIDE. [Concomitant]
     Active Substance: METOCLOPRAMIDE

REACTIONS (4)
  - Device malfunction [Recovered/Resolved]
  - Embolic stroke [Recovered/Resolved]
  - Undersensing [Recovered/Resolved]
  - Sinus node dysfunction [Recovered/Resolved]
